FAERS Safety Report 26195274 (Version 1)
Quarter: 2025Q4

REPORT INFORMATION
  Report Type: Report from Study
  Country: US (occurrence: US)
  Receive Date: 20251224
  Receipt Date: 20251224
  Transmission Date: 20260117
  Serious: Yes (Hospitalization)
  Sender: GLAXOSMITHKLINE
  Company Number: US-GLAXOSMITHKLINE INC-US2025AMR160083

PATIENT
  Sex: Female

DRUGS (1)
  1. MEPOLIZUMAB [Suspect]
     Active Substance: MEPOLIZUMAB
     Indication: Hypereosinophilic syndrome
     Dosage: UNK

REACTIONS (5)
  - Eosinophil count abnormal [Unknown]
  - Eye swelling [Unknown]
  - Mouth swelling [Unknown]
  - Rash [Unknown]
  - Hypersensitivity [Recovered/Resolved]
